FAERS Safety Report 12378792 (Version 3)
Quarter: 2016Q2

REPORT INFORMATION
  Report Type: Spontaneous
  Country: JP (occurrence: JP)
  Receive Date: 20160517
  Receipt Date: 20160628
  Transmission Date: 20160815
  Serious: Yes (Other)
  Sender: FDA-Public Use
  Company Number: JP-JNJFOC-20160515074

PATIENT
  Age: 35 Year
  Sex: Female

DRUGS (5)
  1. LENDORMIN [Concomitant]
     Active Substance: BROTIZOLAM
     Indication: PRODUCT USED FOR UNKNOWN INDICATION
     Route: 048
     Dates: start: 20140520
  2. XEPLION [Suspect]
     Active Substance: PALIPERIDONE PALMITATE
     Indication: PRODUCT USED FOR UNKNOWN INDICATION
     Route: 030
     Dates: start: 201504
  3. LONASEN [Concomitant]
     Active Substance: BLONANSERIN
     Indication: PRODUCT USED FOR UNKNOWN INDICATION
     Route: 048
     Dates: start: 20140414, end: 20160518
  4. THYRADIN [Concomitant]
     Active Substance: LEVOTHYROXINE
     Indication: PRODUCT USED FOR UNKNOWN INDICATION
     Route: 048
     Dates: start: 20150423
  5. AKINETON [Concomitant]
     Active Substance: BIPERIDEN HYDROCHLORIDE
     Route: 048
     Dates: start: 20140524, end: 20160518

REACTIONS (2)
  - Galactorrhoea [Recovered/Resolved]
  - Hyperprolactinaemia [Recovering/Resolving]

NARRATIVE: CASE EVENT DATE: 20160513
